FAERS Safety Report 5357239-0 (Version None)
Quarter: 2007Q2

REPORT INFORMATION
  Report Type: 
  Country: None (occurrence: None)
  Receive Date: 20070612
  Receipt Date: 20070601
  Transmission Date: 20071010
  Serious: Yes (Other)
  Sender: FDA-Public Use
  Company Number: GXKR2007GB04791

PATIENT
  Sex: Female
  Weight: 89 kg

DRUGS (5)
  1. CO-AMOXICLAV                    (AMOXICILLIN, CLAVULANATE) [Suspect]
     Indication: URTICARIA
     Dosage: 250 UNK, TID, ORAL
     Route: 048
     Dates: start: 20070101
  2. FERROUS SULFATE TAB [Concomitant]
  3. LEVOTHYROXINE SODIUM [Concomitant]
  4. TRAXAM        (FELBINAC) [Concomitant]
  5. VITAMIN B12 [Concomitant]

REACTIONS (6)
  - ALANINE AMINOTRANSFERASE INCREASED [None]
  - ASPARTATE AMINOTRANSFERASE INCREASED [None]
  - BLOOD ALKALINE PHOSPHATASE INCREASED [None]
  - BLOOD BILIRUBIN INCREASED [None]
  - GAMMA-GLUTAMYLTRANSFERASE INCREASED [None]
  - JAUNDICE [None]
